FAERS Safety Report 13005140 (Version 1)
Quarter: 2016Q4

REPORT INFORMATION
  Report Type: Spontaneous
  Country: ES (occurrence: ES)
  Receive Date: 20161207
  Receipt Date: 20161207
  Transmission Date: 20170207
  Serious: Yes (Death, Hospitalization, Other)
  Sender: FDA-Public Use
  Company Number: ES-ZYDUS-012854

PATIENT
  Age: 84 Year
  Sex: Female

DRUGS (3)
  1. QUETIAPINE/QUETIAPINE FUMARATE [Suspect]
     Active Substance: QUETIAPINE FUMARATE
     Indication: PRODUCT USED FOR UNKNOWN INDICATION
     Route: 065
  2. FENTANYL. [Suspect]
     Active Substance: FENTANYL
     Indication: PRODUCT USED FOR UNKNOWN INDICATION
     Route: 048
  3. PAROXETINE. [Suspect]
     Active Substance: PAROXETINE
     Indication: PRODUCT USED FOR UNKNOWN INDICATION
     Route: 065

REACTIONS (18)
  - Tremor [Unknown]
  - Dehydration [Unknown]
  - Chills [Recovered/Resolved]
  - Mydriasis [Unknown]
  - Rhabdomyolysis [Unknown]
  - Tachycardia [Not Recovered/Not Resolved]
  - Renal failure [Unknown]
  - Musculoskeletal stiffness [Recovered/Resolved]
  - Clonus [Unknown]
  - Insomnia [Unknown]
  - Dysarthria [Unknown]
  - Hyperhidrosis [Recovered/Resolved]
  - Serotonin syndrome [Unknown]
  - Autonomic nervous system imbalance [Unknown]
  - Cardio-respiratory arrest [Fatal]
  - Hypervigilance [Unknown]
  - Agitation [Recovered/Resolved]
  - Hyperthermia [Not Recovered/Not Resolved]
